FAERS Safety Report 20412114 (Version 5)
Quarter: 2025Q4

REPORT INFORMATION
  Report Type: Report from Study
  Country: TW (occurrence: TW)
  Receive Date: 20220201
  Receipt Date: 20251103
  Transmission Date: 20260118
  Serious: Yes (Life-Threatening, Hospitalization, Other)
  Sender: NOVARTIS
  Company Number: TW-NOVARTISPH-NVSC2021TW278377

PATIENT
  Age: 62 Year
  Sex: Female
  Weight: 42 kg

DRUGS (8)
  1. MYFORTIC [Suspect]
     Active Substance: MYCOPHENOLATE SODIUM
     Indication: Lupus nephritis
     Dosage: 720 MG, QD
     Route: 048
     Dates: start: 20210316, end: 20211021
  2. MYFORTIC [Suspect]
     Active Substance: MYCOPHENOLATE SODIUM
     Dosage: UNK (360)
     Route: 048
     Dates: start: 20210316, end: 20211021
  3. PREDNISOLONE [Concomitant]
     Active Substance: PREDNISOLONE
     Indication: Systemic lupus erythematosus
     Dosage: 10 MG
     Route: 065
     Dates: start: 20191120
  4. HYDROTALCITE [Concomitant]
     Active Substance: HYDROTALCITE
     Indication: Prophylaxis
     Dosage: 1500 MG, UNKNOWN
     Route: 065
     Dates: start: 20210330
  5. FENTANYL CITRATE [Concomitant]
     Active Substance: FENTANYL CITRATE
     Indication: Endotracheal intubation
     Dosage: UNK
     Route: 042
     Dates: start: 20211023, end: 20211102
  6. Xylmol [Concomitant]
     Indication: Body tinea
     Dosage: UNK (*TOPICAL)
     Route: 065
     Dates: start: 20211020, end: 20211020
  7. VITAMINS [Concomitant]
     Active Substance: VITAMINS
     Indication: Endotracheal intubation
     Dosage: UNK
     Route: 042
     Dates: start: 20211022, end: 20211022
  8. MOMETASONE FUROATE [Concomitant]
     Active Substance: MOMETASONE FUROATE
     Indication: Eczema
     Dosage: UNK (*TOPICAL)
     Route: 065
     Dates: start: 20210426, end: 20210503

REACTIONS (20)
  - Pneumonia [Recovered/Resolved]
  - Tachypnoea [Recovered/Resolved]
  - Dyspnoea [Recovering/Resolving]
  - Productive cough [Recovering/Resolving]
  - Asthenia [Recovering/Resolving]
  - Lung consolidation [Recovering/Resolving]
  - Lung opacity [Recovering/Resolving]
  - Pyrexia [Recovering/Resolving]
  - Gastrointestinal haemorrhage [Recovered/Resolved]
  - Haematochezia [Recovered/Resolved]
  - Anaemia [Recovering/Resolving]
  - Cerebral atrophy [Not Recovered/Not Resolved]
  - Pulmonary oedema [Recovered/Resolved]
  - Pulmonary oedema [Recovered/Resolved]
  - Pericardial effusion [Recovering/Resolving]
  - Pyrexia [Recovered/Resolved]
  - Pleural effusion [Recovering/Resolving]
  - Respiratory acidosis [Recovered/Resolved]
  - Upper respiratory tract infection [Recovered/Resolved]
  - Diarrhoea [Recovered/Resolved]

NARRATIVE: CASE EVENT DATE: 20210903
